FAERS Safety Report 26175721 (Version 1)
Quarter: 2025Q4

REPORT INFORMATION
  Report Type: Spontaneous
  Country: CA (occurrence: CA)
  Receive Date: 20251218
  Receipt Date: 20251218
  Transmission Date: 20260119
  Serious: Yes (Death)
  Sender: Kenvue
  Company Number: CA-KENVUE-20251203686

PATIENT

DRUGS (20)
  1. ACETAMINOPHEN [Suspect]
     Active Substance: ACETAMINOPHEN
     Indication: Accidental exposure to product
     Route: 065
  2. DIPHENHYDRAMINE HYDROCHLORIDE [Suspect]
     Active Substance: DIPHENHYDRAMINE HYDROCHLORIDE
     Indication: Accidental exposure to product
     Route: 065
  3. FENTANYL [Suspect]
     Active Substance: FENTANYL
     Indication: Accidental exposure to product
     Route: 065
  4. COCAINE [Suspect]
     Active Substance: COCAINE
     Indication: Accidental exposure to product
     Route: 065
  5. METHAMPHETAMINE [Suspect]
     Active Substance: METHAMPHETAMINE
     Indication: Accidental exposure to product
     Route: 065
  6. MORPHINE [Suspect]
     Active Substance: MORPHINE
     Indication: Accidental exposure to product
     Route: 065
  7. AMPHETAMINE [Suspect]
     Active Substance: AMPHETAMINE
     Indication: Accidental exposure to product
     Route: 065
  8. DIAMORPHINE [Suspect]
     Active Substance: DIAMORPHINE
     Indication: Accidental exposure to product
     Route: 065
  9. METHADONE [Suspect]
     Active Substance: METHADONE HYDROCHLORIDE
     Indication: Accidental exposure to product
     Route: 065
  10. HYDROMORPHONE [Suspect]
     Active Substance: HYDROMORPHONE
     Indication: Accidental exposure to product
     Route: 065
  11. OXYCODONE [Suspect]
     Active Substance: OXYCODONE
     Indication: Accidental exposure to product
     Route: 065
  12. CARFENTANIL [Suspect]
     Active Substance: CARFENTANIL
     Indication: Accidental exposure to product
     Route: 065
  13. CODEINE [Suspect]
     Active Substance: CODEINE
     Indication: Accidental exposure to product
     Route: 065
  14. DIAZEPAM [Suspect]
     Active Substance: DIAZEPAM
     Indication: Accidental exposure to product
     Route: 065
  15. CLONAZEPAM [Suspect]
     Active Substance: CLONAZEPAM
     Indication: Accidental exposure to product
     Route: 065
  16. GABAPENTIN [Suspect]
     Active Substance: GABAPENTIN
     Indication: Accidental exposure to product
     Route: 065
  17. QUETIAPINE [Suspect]
     Active Substance: QUETIAPINE
     Indication: Accidental exposure to product
     Dosage: UNK
     Route: 065
  18. CITALOPRAM [Suspect]
     Active Substance: CITALOPRAM
     Indication: Accidental exposure to product
     Route: 065
  19. ESCITALOPRAM [Suspect]
     Active Substance: ESCITALOPRAM OXALATE
     Indication: Accidental exposure to product
     Route: 065
  20. HERBALS\TETRAHYDROCANNABINOL UNSPECIFIED [Suspect]
     Active Substance: HERBALS\TETRAHYDROCANNABINOL UNSPECIFIED
     Indication: Accidental exposure to product
     Route: 065

REACTIONS (2)
  - Toxicity to various agents [Fatal]
  - Accidental exposure to product [Fatal]
